FAERS Safety Report 19493037 (Version 1)
Quarter: 2021Q3

REPORT INFORMATION
  Report Type: Spontaneous
  Country: CN (occurrence: CN)
  Receive Date: 20210705
  Receipt Date: 20210705
  Transmission Date: 20211014
  Serious: Yes (Death)
  Sender: FDA-Public Use
  Company Number: CN-PFIZER INC-2021813038

PATIENT
  Age: 49 Year
  Sex: Female

DRUGS (3)
  1. MEROPENEM. [Suspect]
     Active Substance: MEROPENEM
     Indication: KLEBSIELLA INFECTION
  2. MEROPENEM. [Suspect]
     Active Substance: MEROPENEM
     Indication: MENINGITIS
  3. MEROPENEM. [Suspect]
     Active Substance: MEROPENEM
     Indication: ANTIBIOTIC THERAPY
     Dosage: 2 G, 3X/DAY (EVERY 8 HOURS)
     Route: 042
     Dates: start: 201807

REACTIONS (1)
  - Drug ineffective [Fatal]

NARRATIVE: CASE EVENT DATE: 201807
